FAERS Safety Report 12736490 (Version 1)
Quarter: 2016Q3

REPORT INFORMATION
  Report Type: Spontaneous
  Country: US (occurrence: US)
  Receive Date: 20160913
  Receipt Date: 20160913
  Transmission Date: 20161109
  Serious: No
  Sender: FDA-Public Use
  Company Number: US-NATCO PHARMA LIMITED-1057269

PATIENT
  Age: 63 Year
  Sex: Female
  Weight: 84.55 kg

DRUGS (1)
  1. LANSOPRAZOLE DELAYED RELEASE CAPSULES, 15 MG AND 30 MG [Suspect]
     Active Substance: LANSOPRAZOLE
     Indication: GASTROOESOPHAGEAL REFLUX DISEASE
     Route: 048

REACTIONS (1)
  - Tubulointerstitial nephritis [None]

NARRATIVE: CASE EVENT DATE: 20160101
